FAERS Safety Report 7123036-9 (Version None)
Quarter: 2010Q4

REPORT INFORMATION
  Report Type: 
  Country: None (occurrence: None)
  Receive Date: 20101125
  Receipt Date: 20101104
  Transmission Date: 20110411
  Serious: Yes (Other)
  Sender: FDA-Public Use
  Company Number: GB-AMGEN-GBRSP2010004331

PATIENT

DRUGS (10)
  1. ENBREL [Suspect]
     Indication: ANKYLOSING SPONDYLITIS
     Dosage: 50 MG 1 TIMES PER 1 WK
     Route: 058
     Dates: start: 20100212, end: 20101001
  2. ETORICOXIB [Suspect]
     Indication: PAIN
     Dosage: 50 MG, 1X/DAY
     Route: 048
     Dates: end: 20101001
  3. AMITRIPTYLINE [Concomitant]
     Indication: PAIN
     Dosage: 10 MG, UNK
     Route: 048
  4. ACETYLSALICYLIC ACID [Concomitant]
     Indication: HYPERTENSION
     Dosage: 75 MG, 1X/DAY
     Route: 048
  5. ACUGESIC [Concomitant]
     Indication: PAIN
     Dosage: 75 UG, HOURLY
  6. LANSOPRAZOLE [Concomitant]
     Indication: GASTRIC DISORDER
     Dosage: 20 MG, 1X/DAY
     Route: 048
  7. LOSARTAN [Concomitant]
     Indication: HYPERTENSION
     Dosage: 20 MG, 1X/DAY
     Route: 048
  8. MACROGOL [Concomitant]
     Indication: CONSTIPATION
     Dosage: 1 DF, 1X/DAY
     Route: 048
  9. PREGABALIN [Concomitant]
     Indication: PAIN
     Dosage: 150 MG, 1X/DAY
     Route: 048
  10. ATENOLOL [Concomitant]
     Indication: HYPERTENSION
     Dosage: 50 MG, 1X/DAY
     Route: 048

REACTIONS (1)
  - CEREBRAL ARTERY OCCLUSION [None]
